FAERS Safety Report 6376366-2 (Version None)
Quarter: 2009Q3

REPORT INFORMATION
  Report Type: 
  Country: None (occurrence: None)
  Receive Date: 20090925
  Receipt Date: 20090914
  Transmission Date: 20100115
  Serious: Yes (Life-Threatening, Hospitalization, Other)
  Sender: FDA-Public Use
  Company Number: GB-RANBAXY-2009RR-28112

PATIENT
  Age: 78 Year
  Sex: Male

DRUGS (16)
  1. RAMIPRIL [Suspect]
     Indication: HYPERTENSION
     Dosage: 2.5 MG, QD
     Route: 048
     Dates: end: 20090909
  2. RAMIPRIL [Suspect]
     Indication: MYOCARDIAL ISCHAEMIA
  3. COTRIM [Suspect]
     Indication: PROPHYLAXIS
     Dosage: 1960 MG, UNK
     Route: 048
     Dates: start: 20090820, end: 20090909
  4. COTRIM [Suspect]
     Indication: PERITONITIS BACTERIAL
  5. SPIRONOLACTONE [Suspect]
     Indication: ALCOHOLIC LIVER DISEASE
     Dosage: 100 MG, QD
     Route: 048
     Dates: end: 20090909
  6. ALLOPURINOL [Concomitant]
  7. ASPIRIN [Concomitant]
  8. GLYCERYL TRINITRATE [Concomitant]
  9. ISOSORBIDE MONONITRATE [Concomitant]
  10. LACTULOSE [Concomitant]
  11. LANSOPRAZOLE [Concomitant]
  12. NOVOMIX [Concomitant]
  13. PROPRANOLOL [Concomitant]
  14. SUCRALFATE [Concomitant]
  15. TAMSULOSIN HCL [Concomitant]
  16. THIAMINE HCL [Concomitant]

REACTIONS (2)
  - DRUG INTERACTION [None]
  - HYPERKALAEMIA [None]
